FAERS Safety Report 9471832 (Version 1)
Quarter: 2013Q3

REPORT INFORMATION
  Report Type: Spontaneous
  Country: US (occurrence: None)
  Receive Date: 20130819
  Receipt Date: 20130819
  Transmission Date: 20140515
  Serious: Yes (Other)
  Sender: FDA-Public Use
  Company Number: 2013P1017319

PATIENT
  Age: 14 Year
  Sex: Male
  Weight: 71.22 kg

DRUGS (1)
  1. MYORISAN 10 MG [Suspect]
     Indication: ACNE
     Route: 048
     Dates: start: 20130703, end: 20130714

REACTIONS (2)
  - Pharyngitis [None]
  - Hypersensitivity [None]
